FAERS Safety Report 23619116 (Version 2)
Quarter: 2024Q2

REPORT INFORMATION
  Report Type: Spontaneous
  Country: JP (occurrence: JP)
  Receive Date: 20240311
  Receipt Date: 20240404
  Transmission Date: 20240716
  Serious: Yes (Hospitalization, Other)
  Sender: FDA-Public Use
  Company Number: JP-KYOWAKIRIN-2024KK001123

PATIENT

DRUGS (16)
  1. POTELIGEO [Suspect]
     Active Substance: MOGAMULIZUMAB-KPKC
     Indication: Cutaneous T-cell lymphoma
     Dosage: 50 MG, QD
     Route: 041
     Dates: start: 20240112, end: 20240112
  2. POTELIGEO [Suspect]
     Active Substance: MOGAMULIZUMAB-KPKC
     Dosage: 50 MG, QD
     Route: 041
     Dates: start: 20240202, end: 20240202
  3. TRAMADOL [Suspect]
     Active Substance: TRAMADOL\TRAMADOL HYDROCHLORIDE
     Indication: Pain
     Dosage: 2.5 MG, QID
     Route: 048
     Dates: start: 20240118
  4. HYDROCORTONE ACETATE [Concomitant]
     Indication: Prophylaxis
     Dosage: 100 MG, QD
     Route: 041
     Dates: start: 20240112, end: 20240112
  5. HYDROCORTONE ACETATE [Concomitant]
     Dosage: 100 MG, QD
     Route: 041
     Dates: start: 20240202
  6. ROSUVASTATIN [Concomitant]
     Active Substance: ROSUVASTATIN
     Indication: Dyslipidaemia
     Dosage: 2.5 MG, QD
     Route: 048
  7. VONOPRAZAN FUMARATE [Concomitant]
     Active Substance: VONOPRAZAN FUMARATE
     Indication: Gastritis
     Dosage: 20 MG, QD
     Route: 048
  8. HERBALS [Concomitant]
     Active Substance: HERBALS
     Indication: Gastritis
     Dosage: 3.5 G, TID
     Route: 048
  9. BIO-THREE [Concomitant]
     Active Substance: HERBALS
     Indication: Diarrhoea
     Dosage: 1 DF, TID
     Route: 048
     Dates: start: 20240117
  10. NOVAMIN [ALANINE;ARGININE;ASPARTIC ACID;CYSTINE;GLUTAMIC ACID;GLYCINE; [Concomitant]
     Indication: Nausea
     Dosage: 5 MG, TID
     Route: 048
     Dates: start: 20240118, end: 20240202
  11. MAGNESIUM OXIDE [Concomitant]
     Active Substance: MAGNESIUM OXIDE
     Indication: Constipation
     Dosage: 330 MG, TID
     Route: 048
     Dates: start: 20240118
  12. SODIUM PHOSPHATE, DIBASIC\SODIUM PHOSPHATE, MONOBASIC [Concomitant]
     Active Substance: SODIUM PHOSPHATE, DIBASIC\SODIUM PHOSPHATE, MONOBASIC
     Indication: Hypophosphataemia
     Dosage: 400 MG, BID
     Route: 048
     Dates: start: 20240124, end: 20240129
  13. AMPICILLIN SODIUM\SULBACTAM SODIUM [Concomitant]
     Active Substance: AMPICILLIN SODIUM\SULBACTAM SODIUM
     Indication: Pyrexia
     Dosage: 3 G, TID
     Route: 042
     Dates: start: 20240115, end: 20240125
  14. AMPICILLIN SODIUM\SULBACTAM SODIUM [Concomitant]
     Active Substance: AMPICILLIN SODIUM\SULBACTAM SODIUM
     Indication: C-reactive protein increased
  15. CEPHALEXIN [Concomitant]
     Active Substance: CEPHALEXIN
     Indication: Pyrexia
     Dosage: 250 MG, TID
     Route: 048
     Dates: start: 20240126, end: 20240202
  16. CEPHALEXIN [Concomitant]
     Active Substance: CEPHALEXIN
     Indication: C-reactive protein increased

REACTIONS (9)
  - Gastric cancer [Not Recovered/Not Resolved]
  - Anaemia [Recovered/Resolved]
  - Pyrexia [Not Recovered/Not Resolved]
  - C-reactive protein increased [Not Recovered/Not Resolved]
  - Pain [Not Recovered/Not Resolved]
  - Diarrhoea [Not Recovered/Not Resolved]
  - Nausea [Recovered/Resolved]
  - Constipation [Not Recovered/Not Resolved]
  - Hypophosphataemia [Not Recovered/Not Resolved]

NARRATIVE: CASE EVENT DATE: 20240112
